FAERS Safety Report 8607946-9 (Version None)
Quarter: 2012Q3

REPORT INFORMATION
  Report Type: 
  Country: None (occurrence: None)
  Receive Date: 20120821
  Receipt Date: 20120809
  Transmission Date: 20120928
  Serious: Yes (Disabling)
  Sender: FDA-Public Use
  Company Number: JP-BRISTOL-MYERS SQUIBB COMPANY-16862500

PATIENT
  Age: 33 Year
  Sex: Male

DRUGS (1)
  1. ABILIFY [Suspect]
     Dosage: 3MG NOV07-JAN08, 6MG SEP08-ONG, 12MG JUN09-ONG
     Route: 048
     Dates: start: 20071101

REACTIONS (5)
  - DYSPHAGIA [None]
  - DYSTONIA [None]
  - MASTICATION DISORDER [None]
  - DYSLALIA [None]
  - TARDIVE DYSKINESIA [None]
